FAERS Safety Report 10997498 (Version 2)
Quarter: 2015Q2

REPORT INFORMATION
  Report Type: Spontaneous
  Country: CA (occurrence: CA)
  Receive Date: 20150408
  Receipt Date: 20150603
  Transmission Date: 20150821
  Serious: Yes (Death)
  Sender: FDA-Public Use
  Company Number: CA-MYLANLABS-2015M1008934

PATIENT

DRUGS (1)
  1. EPIPEN [Suspect]
     Active Substance: EPINEPHRINE
     Indication: HYPERSENSITIVITY
     Dosage: UNK UNK, ONCE
     Dates: start: 20141224, end: 20141224

REACTIONS (2)
  - Expired product administered [Fatal]
  - Food allergy [Fatal]

NARRATIVE: CASE EVENT DATE: 20141224
